FAERS Safety Report 10236039 (Version 1)
Quarter: 2014Q2

REPORT INFORMATION
  Report Type: Spontaneous
  Country: US (occurrence: US)
  Receive Date: 20140613
  Receipt Date: 20140613
  Transmission Date: 20141212
  Serious: No
  Sender: FDA-Public Use
  Company Number: US-BAXTER-2014BAX027713

PATIENT
  Sex: Male

DRUGS (7)
  1. DIANEAL LOW CALCIUM [Suspect]
     Indication: RENAL FAILURE CHRONIC
     Route: 033
     Dates: start: 201405
  2. DIANEAL LOW CALCIUM [Suspect]
     Route: 033
     Dates: start: 201405
  3. DIANEAL LOW CALCIUM [Suspect]
     Indication: RENAL FAILURE CHRONIC
     Route: 033
     Dates: start: 201405
  4. DIANEAL LOW CALCIUM [Suspect]
     Route: 033
     Dates: start: 201405
  5. DIANEAL LOW CALCIUM [Suspect]
     Route: 033
  6. DIANEAL LOW CALCIUM [Suspect]
     Indication: RENAL FAILURE CHRONIC
     Route: 033
     Dates: start: 201405, end: 201405
  7. DIANEAL LOW CALCIUM [Suspect]
     Route: 033
     Dates: start: 201405, end: 201405

REACTIONS (4)
  - Peritoneal dialysis complication [Recovering/Resolving]
  - Middle ear effusion [Not Recovered/Not Resolved]
  - Ear disorder [Not Recovered/Not Resolved]
  - Dizziness [Not Recovered/Not Resolved]
